FAERS Safety Report 20017247 (Version 6)
Quarter: 2022Q3

REPORT INFORMATION
  Report Type: Report from Study
  Country: US (occurrence: US)
  Receive Date: 20211030
  Receipt Date: 20220708
  Transmission Date: 20221027
  Serious: Yes (Hospitalization, Other)
  Sender: FDA-Public Use
  Company Number: US-NOVARTISTESTPH-NVSC2021US248263

PATIENT
  Sex: Male

DRUGS (3)
  1. ENTRESTO [Suspect]
     Active Substance: SACUBITRIL\VALSARTAN
     Indication: Cardiac failure
     Dosage: 1 DOSAGE FORM, BID (49/51 MG)
     Route: 048
  2. ENTRESTO [Suspect]
     Active Substance: SACUBITRIL\VALSARTAN
     Dosage: 1 DOSAGE FORM, BID (97/103 MG)
     Route: 048
     Dates: start: 202107
  3. ENTRESTO [Suspect]
     Active Substance: SACUBITRIL\VALSARTAN
     Dosage: 1 DOSAGE FORM, BID (97/103 MG)
     Route: 048

REACTIONS (11)
  - Seizure [Unknown]
  - Hypertension [Unknown]
  - Headache [Unknown]
  - Loss of consciousness [Unknown]
  - Vomiting [Unknown]
  - Diarrhoea [Unknown]
  - Limb injury [Unknown]
  - Blood magnesium decreased [Unknown]
  - Blood potassium decreased [Unknown]
  - Orthopnoea [Unknown]
  - Fatigue [Unknown]
